FAERS Safety Report 5827093-9 (Version None)
Quarter: 2008Q3

REPORT INFORMATION
  Report Type: 
  Country: None (occurrence: None)
  Receive Date: 20080730
  Receipt Date: 20080729
  Transmission Date: 20090109
  Serious: Yes (Other)
  Sender: FDA-Public Use
  Company Number: D0058203A

PATIENT
  Age: 20 Year
  Sex: Male
  Weight: 70 kg

DRUGS (1)
  1. ZOVIRAX [Suspect]
     Dosage: 800MG FIVE TIMES PER DAY
     Route: 042
     Dates: start: 20080723, end: 20080724

REACTIONS (4)
  - BLOOD CREATININE INCREASED [None]
  - OLIGURIA [None]
  - OVERDOSE [None]
  - RENAL FAILURE [None]
